FAERS Safety Report 6176432-0 (Version None)
Quarter: 2009Q2

REPORT INFORMATION
  Report Type: 
  Country: None (occurrence: None)
  Receive Date: 20090501
  Receipt Date: 20090422
  Transmission Date: 20091009
  Serious: Yes (Hospitalization, Other)
  Sender: FDA-Public Use
  Company Number: PR-MERCK-0706USA00993

PATIENT
  Age: 44 Year
  Sex: Female

DRUGS (4)
  1. FOSAMAX [Suspect]
     Indication: PROPHYLAXIS
     Route: 048
     Dates: start: 20040401, end: 20041001
  2. FOSAMAX [Suspect]
     Route: 048
     Dates: start: 20030101, end: 20040101
  3. FOSAMAX [Suspect]
     Route: 048
     Dates: start: 20041105
  4. PREMARIN [Concomitant]
     Route: 065
     Dates: start: 20000101

REACTIONS (3)
  - CHOLELITHIASIS [None]
  - INAPPROPRIATE SCHEDULE OF DRUG ADMINISTRATION [None]
  - OSTEONECROSIS [None]
